FAERS Safety Report 6944932-9 (Version None)
Quarter: 2010Q3

REPORT INFORMATION
  Report Type: 
  Country: None (occurrence: None)
  Receive Date: 20100827
  Receipt Date: 20100817
  Transmission Date: 20110219
  Serious: Yes (Hospitalization)
  Sender: FDA-Public Use
  Company Number: US-PFIZER INC-2010104048

PATIENT
  Age: 40 Year
  Sex: Female

DRUGS (3)
  1. XANAX [Suspect]
  2. CELEXA [Suspect]
  3. AVONEX [Suspect]
     Indication: MULTIPLE SCLEROSIS
     Dosage: 30 UG, WEEKLY
     Route: 030

REACTIONS (3)
  - ACCIDENTAL OVERDOSE [None]
  - HAEMATOMA [None]
  - MULTIPLE SCLEROSIS RELAPSE [None]
